FAERS Safety Report 24827426 (Version 1)
Quarter: 2025Q1

REPORT INFORMATION
  Report Type: Spontaneous
  Country: US (occurrence: US)
  Receive Date: 20250109
  Receipt Date: 20250109
  Transmission Date: 20250409
  Serious: No
  Sender: ABBVIE
  Company Number: US-ABBVIE-6076346

PATIENT
  Sex: Female

DRUGS (1)
  1. ARMOUR THYROID [Suspect]
     Active Substance: THYROID, PORCINE
     Indication: Product used for unknown indication
     Route: 048

REACTIONS (6)
  - Alopecia [Unknown]
  - Weight increased [Unknown]
  - Onychoclasis [Unknown]
  - Appetite disorder [Unknown]
  - Nail ridging [Unknown]
  - Hair texture abnormal [Unknown]
